FAERS Safety Report 13849611 (Version 1)
Quarter: 2017Q3

REPORT INFORMATION
  Report Type: Spontaneous
  Country: US (occurrence: US)
  Receive Date: 20170809
  Receipt Date: 20170809
  Transmission Date: 20171127
  Serious: No
  Sender: FDA-Public Use
  Company Number: US-PFIZER INC-2017342326

PATIENT

DRUGS (3)
  1. NEURONTIN [Suspect]
     Active Substance: GABAPENTIN
     Dosage: 200 UNK, 3X/DAY (200)
  2. NEURONTIN [Suspect]
     Active Substance: GABAPENTIN
     Indication: PRURITUS
     Dosage: 100 UNK, 3X/DAY (100)
  3. NEURONTIN [Suspect]
     Active Substance: GABAPENTIN
     Dosage: 300 UNK, 3X/DAY (300)

REACTIONS (1)
  - Drug ineffective for unapproved indication [Unknown]
